FAERS Safety Report 4332077-6 (Version None)
Quarter: 2004Q2

REPORT INFORMATION
  Report Type: 
  Country: None (occurrence: None)
  Receive Date: 20040405
  Receipt Date: 20040312
  Transmission Date: 20050107
  Serious: Yes (Hospitalization, Disabling)
  Sender: FDA-Public Use
  Company Number: JP-ROCHE-361421

PATIENT
  Age: 75 Year
  Sex: Male

DRUGS (10)
  1. PERDIPINE [Suspect]
     Indication: HYPERTENSION
     Route: 041
     Dates: start: 20020507, end: 20020508
  2. PERDIPINE [Suspect]
     Route: 041
     Dates: start: 20020509, end: 20020509
  3. ARTIST [Suspect]
     Indication: HYPERTENSION
     Route: 048
     Dates: start: 20020509, end: 20020509
  4. NITROGLYCERIN [Suspect]
     Indication: HYPERTENSION
     Route: 041
     Dates: start: 20020504, end: 20020508
  5. NITROGLYCERIN [Suspect]
     Route: 041
     Dates: start: 20020509, end: 20020509
  6. ADALAT [Suspect]
     Indication: HYPERTENSION
     Route: 048
     Dates: start: 20020508, end: 20020509
  7. CARDENALIN [Suspect]
     Indication: HYPERTENSION
     Route: 048
     Dates: start: 20020308, end: 20020309
  8. FUROSEMIDE [Concomitant]
     Route: 048
     Dates: start: 20020515
  9. HEPARIN [Concomitant]
     Dates: start: 20020515
  10. ANTIBACTERIAL [Concomitant]
     Indication: PNEUMONIA
     Route: 041
     Dates: start: 20020303

REACTIONS (5)
  - BLOOD PRESSURE DECREASED [None]
  - DEPRESSED LEVEL OF CONSCIOUSNESS [None]
  - ISCHAEMIC CEREBRAL INFARCTION [None]
  - LACUNAR INFARCTION [None]
  - SOMNOLENCE [None]
